FAERS Safety Report 19746026 (Version 1)
Quarter: 2021Q3

REPORT INFORMATION
  Report Type: Report from Study
  Country: US (occurrence: US)
  Receive Date: 20210825
  Receipt Date: 20210825
  Transmission Date: 20211014
  Serious: Yes (Hospitalization)
  Sender: FDA-Public Use
  Company Number: US-ASTRAZENECA-2021A692101

PATIENT
  Age: 833 Month
  Sex: Female

DRUGS (1)
  1. TAGRISSO [Suspect]
     Active Substance: OSIMERTINIB
     Indication: PRODUCT USED FOR UNKNOWN INDICATION
     Route: 048
     Dates: start: 20210318

REACTIONS (3)
  - Renal disorder [Unknown]
  - Skin exfoliation [Unknown]
  - Diarrhoea [Unknown]

NARRATIVE: CASE EVENT DATE: 202104
